FAERS Safety Report 6720099-7 (Version None)
Quarter: 2010Q2

REPORT INFORMATION
  Report Type: 
  Country: None (occurrence: None)
  Receive Date: 20100507
  Receipt Date: 20100502
  Transmission Date: 20101027
  Serious: Yes (Life-Threatening)
  Sender: FDA-Public Use
  Company Number: 2010TJ0043

PATIENT
  Age: 6 Year
  Sex: Male

DRUGS (2)
  1. TWINJECT 0.3 [Suspect]
     Indication: HYPERSENSITIVITY
     Dosage: 0.15 MG, AS NEEDED0.15 MG, AS NEEDED
     Dates: start: 20100219, end: 20100219
  2. TWINJECT 0.3 [Suspect]
     Indication: HYPERSENSITIVITY
     Dates: start: 20100219, end: 20100219

REACTIONS (4)
  - DEVICE ELECTRICAL FINDING [None]
  - DEVICE FAILURE [None]
  - EXPIRED DRUG ADMINISTERED [None]
  - NEEDLE ISSUE [None]
